FAERS Safety Report 7325201-4 (Version None)
Quarter: 2011Q1

REPORT INFORMATION
  Report Type: 
  Country: None (occurrence: None)
  Receive Date: 20110218
  Receipt Date: 20110207
  Transmission Date: 20110831
  Serious: Yes (Death, Hospitalization, Other)
  Sender: FDA-Public Use
  Company Number: CL-291-2011

PATIENT
  Age: 88 Year
  Sex: Female

DRUGS (13)
  1. HYPROMELLOSE [Concomitant]
  2. SIMVASTATIN [Concomitant]
  3. AMOXICILLIN [Suspect]
     Indication: CHOLECYSTITIS
     Dosage: 1GM 12 DOSES IV
     Route: 042
     Dates: start: 20090909
  4. ENOXAPARIN [Concomitant]
  5. METRONIDAZOLE [Suspect]
     Indication: CHOLECYSTITIS
     Dosage: 500 MG 2 DOSES IV
     Route: 042
     Dates: start: 20090909
  6. PIPERACILLIN SODIUM AS TAZOCIN [Suspect]
     Indication: CHOLECYSTITIS
     Dosage: 4.5G 1 DOSE IV
     Route: 042
     Dates: start: 20090909, end: 20090909
  7. NICORANDIL [Concomitant]
  8. PARACETAMOL [Concomitant]
  9. TAZOBACTAM SODIUM AS TAZOCIN [Suspect]
     Indication: CHOLECYSTITIS
     Dosage: 4.5G 3 DOSES IV
     Route: 042
     Dates: start: 20091009, end: 20091009
  10. BISOPROLOL FUMARATE [Concomitant]
  11. ISOSORBRIDE MONONITRATE [Concomitant]
  12. CLOPIDOGREL [Concomitant]
  13. LEVOTHYROXINE [Concomitant]

REACTIONS (10)
  - HYPOPHAGIA [None]
  - WEIGHT DECREASED [None]
  - MALAISE [None]
  - CLOSTRIDIAL INFECTION [None]
  - CYANOSIS [None]
  - ABDOMINAL PAIN LOWER [None]
  - ASTHENIA [None]
  - BLOOD PRESSURE DECREASED [None]
  - GENERAL PHYSICAL HEALTH DETERIORATION [None]
  - ANAEMIA [None]
